FAERS Safety Report 7518374-1 (Version None)
Quarter: 2011Q2

REPORT INFORMATION
  Report Type: 
  Country: None (occurrence: None)
  Receive Date: 20110602
  Receipt Date: 20091031
  Transmission Date: 20111010
  Serious: Yes (Other)
  Sender: FDA-Public Use
  Company Number: US-BAYER-200938382NA

PATIENT
  Age: 67 Year
  Sex: Male
  Weight: 91 kg

DRUGS (30)
  1. PLASMA [Concomitant]
     Dosage: 4 UNITS
     Route: 042
     Dates: start: 20030424
  2. ZOCOR [Concomitant]
     Dosage: 40 MG, QD
     Route: 048
  3. CALCIUM CHLORIDE [Concomitant]
     Dosage: 2 GRAMS
     Route: 042
     Dates: start: 20030424
  4. LASIX [Concomitant]
     Dosage: 40 MG, QD
     Route: 042
     Dates: start: 20030415
  5. NAFCILLIN [Concomitant]
     Dosage: UNK
     Route: 042
     Dates: start: 20030424
  6. VERSED [Concomitant]
     Dosage: 2 MG
     Route: 042
     Dates: start: 20030424, end: 20030424
  7. TRASYLOL [Suspect]
     Indication: ATRIAL SEPTAL DEFECT
  8. ELAVIL [Concomitant]
     Dosage: 25 MG, QD
     Route: 048
  9. ACETYLSALICYLIC ACID SRT [Concomitant]
     Dosage: 325 MG, QD
     Route: 048
  10. DIGOXIN [Concomitant]
     Dosage: 0.125 MG, QD
     Route: 048
     Dates: start: 20030415
  11. INSULIN [Concomitant]
     Dosage: SLIDING SCALE
     Route: 058
     Dates: start: 20030415
  12. TRASYLOL [Suspect]
     Indication: MITRAL VALVE REPAIR
  13. LANTUS [Concomitant]
     Dosage: EVERY MORNING
     Route: 058
     Dates: start: 20030415
  14. RISPERDAL [Concomitant]
     Dosage: 0.5 MG, BID
     Route: 048
     Dates: start: 20030415
  15. NIPRIDE [Concomitant]
     Dosage: 25 MG
     Route: 042
     Dates: start: 20030424
  16. PLATELETS [Concomitant]
     Dosage: 6 PACK
     Route: 042
     Dates: start: 20030424
  17. HEPARIN [Concomitant]
     Dosage: 53000 UNITS
     Route: 042
     Dates: start: 20030424, end: 20030424
  18. NAFCILLIN [Concomitant]
     Dosage: UNK
     Route: 042
     Dates: start: 20030415
  19. TRASYLOL [Suspect]
     Indication: AORTIC VALVE REPLACEMENT
     Dosage: 200 ML PUMP PRIME, THEN 50 ML/HR
     Route: 042
     Dates: start: 20030424, end: 20030424
  20. LORTAB [Concomitant]
     Dosage: AS NEEDED
     Route: 048
  21. LOPRESSOR [Concomitant]
     Dosage: 12.5 MG, BID
     Route: 048
     Dates: start: 20030415
  22. AMIODARONE HCL [Concomitant]
  23. DILTIAZEM [Concomitant]
     Dosage: 90 MG EVERY SIX HOURS
     Route: 048
     Dates: start: 20030415
  24. SODIUM BICARBONATE [Concomitant]
     Dosage: 1 AMPUL
     Route: 042
     Dates: start: 20030424, end: 20030424
  25. NEO-SYNEPHRINE [Concomitant]
     Dosage: UNK
     Route: 042
     Dates: start: 20030424
  26. BUMEX [Concomitant]
     Dosage: UNK
     Route: 042
     Dates: start: 20030424
  27. TRASYLOL [Suspect]
     Indication: VENTRICULAR SEPTAL DEFECT REPAIR
  28. LIDOCAINE [Concomitant]
     Dosage: UNK
     Dates: start: 20030603
  29. CARDIZEM [Concomitant]
     Dosage: UNK
     Dates: start: 20030503
  30. HEPARIN [Concomitant]
     Dosage: 1000 UNITS PER HOUR
     Route: 042
     Dates: start: 20030415

REACTIONS (10)
  - EMOTIONAL DISTRESS [None]
  - STRESS [None]
  - PAIN [None]
  - RENAL IMPAIRMENT [None]
  - RENAL INJURY [None]
  - UNEVALUABLE EVENT [None]
  - FEAR [None]
  - INJURY [None]
  - ANXIETY [None]
  - RENAL FAILURE [None]
